FAERS Safety Report 22069272 (Version 1)
Quarter: 2023Q1

REPORT INFORMATION
  Report Type: Spontaneous
  Country: US (occurrence: None)
  Receive Date: 20230306
  Receipt Date: 20230306
  Transmission Date: 20230417
  Serious: Yes (Disabling)
  Sender: FDA-Public Use
  Company Number: None

PATIENT
  Age: 47 Year
  Sex: Female
  Weight: 65.25 kg

DRUGS (12)
  1. TORADOL [Suspect]
     Active Substance: KETOROLAC TROMETHAMINE
     Indication: Myalgia
     Dosage: OTHER QUANTITY : 2 INJECTION(S);?OTHER FREQUENCY : ONE TIME;?
     Route: 030
  2. TORADOL [Suspect]
     Active Substance: KETOROLAC TROMETHAMINE
     Indication: Muscle tightness
  3. MONTELUKAST SODIUM [Concomitant]
     Active Substance: MONTELUKAST SODIUM
  4. Albuterol Ventolin HFA [Concomitant]
  5. FAMOTIDINE [Concomitant]
     Active Substance: FAMOTIDINE
  6. CYCLOBENZAPRINE [Concomitant]
     Active Substance: CYCLOBENZAPRINE
  7. VITAMIN B COMPLEX [Concomitant]
     Active Substance: CYANOCOBALAMIN\DEXPANTHENOL\NIACINAMIDE\PYRIDOXINE HYDROCHLORIDE\RIBOFLAVIN 5^-PHOSPHATE SODIUM\THIA
  8. ZINC [Concomitant]
     Active Substance: ZINC
  9. Mature adult multi vitamin [Concomitant]
  10. MELATONIN [Concomitant]
     Active Substance: MELATONIN
  11. PROBIOTICS NOS [Concomitant]
     Active Substance: PROBIOTICS NOS
  12. UNSPECIFIED INGREDIENT [Concomitant]
     Active Substance: UNSPECIFIED INGREDIENT

REACTIONS (11)
  - Muscle spasms [None]
  - Musculoskeletal stiffness [None]
  - Bell^s palsy [None]
  - Dizziness [None]
  - Synkinesis [None]
  - Hypotonia [None]
  - Muscle spasms [None]
  - Eye disorder [None]
  - Corneal reflex decreased [None]
  - Trismus [None]
  - Ear disorder [None]

NARRATIVE: CASE EVENT DATE: 20201007
